FAERS Safety Report 25866088 (Version 2)
Quarter: 2025Q4

REPORT INFORMATION
  Report Type: Report from Study
  Country: US (occurrence: US)
  Receive Date: 20250930
  Receipt Date: 20251031
  Transmission Date: 20260117
  Serious: No
  Sender: DECIPHERA PHARMACEUTICALS
  Company Number: US-DECIPHERA PHARMACEUTICALS LLC-2025US001159

PATIENT
  Age: 40 Year
  Sex: Female
  Weight: 75.283 kg

DRUGS (8)
  1. ROMVIMZA [Suspect]
     Active Substance: VIMSELTINIB
     Indication: Giant cell tumour of tendon sheath
     Dosage: 30 MILLIGRAM, TWICE WEEKLY (TOOK ON MONDAY AND THURSDAY) (NO MORE THAN ONCE EVERY 72 HOURS)
  2. ROMVIMZA [Suspect]
     Active Substance: VIMSELTINIB
     Dosage: UNK (DOSE REDUCTION)
  3. ROMVIMZA [Suspect]
     Active Substance: VIMSELTINIB
     Dosage: 20MG DAILY ON TUESDAY + FRIDAY
  4. VITAMINS [Concomitant]
     Active Substance: VITAMINS
     Indication: Product used for unknown indication
     Dosage: UNK
  5. GABAPENTIN [Concomitant]
     Active Substance: GABAPENTIN
     Indication: Product used for unknown indication
     Dosage: UNK
  6. PROZAC [Concomitant]
     Active Substance: FLUOXETINE HYDROCHLORIDE
     Indication: Product used for unknown indication
     Dosage: UNK
  7. TRAZODONE HCL [Concomitant]
     Active Substance: TRAZODONE HYDROCHLORIDE
     Indication: Product used for unknown indication
     Dosage: UNK
  8. TYLENOL 8 HR ARTHRITIS PAIN [Concomitant]
     Active Substance: ACETAMINOPHEN
     Indication: Arthralgia
     Dosage: UNK, TID

REACTIONS (8)
  - Hepatic enzyme increased [Recovered/Resolved]
  - Blood pressure increased [Recovered/Resolved]
  - Eye swelling [Recovering/Resolving]
  - Headache [Recovering/Resolving]
  - Swelling face [Recovered/Resolved]
  - Peripheral swelling [Recovering/Resolving]
  - Rash [Recovering/Resolving]
  - Pruritus [Recovering/Resolving]
